FAERS Safety Report 8916721 (Version 1)
Quarter: 2012Q4

REPORT INFORMATION
  Report Type: Report from Study
  Country: JP (occurrence: JP)
  Receive Date: 20121120
  Receipt Date: 20121120
  Transmission Date: 20130627
  Serious: Yes (Life-Threatening, Hospitalization)
  Sender: FDA-Public Use
  Company Number: JP-009507513-2012SP011434

PATIENT
  Age: 56 Year
  Sex: Male
  Weight: 71 kg

DRUGS (10)
  1. PEGINTERFERON ALFA-2B [Suspect]
     Indication: HEPATITIS C
     Dosage: 1.5 ?g/kg, QW
     Route: 058
     Dates: start: 20120209, end: 20120222
  2. REBETOL [Suspect]
     Indication: HEPATITIS C
     Dosage: 600 mg, QD
     Route: 048
     Dates: start: 20120209, end: 20120222
  3. TELAVIC [Suspect]
     Indication: HEPATITIS C
     Dosage: 2250 mg, QD
     Route: 048
     Dates: start: 20120209, end: 20120216
  4. TELAVIC [Suspect]
     Dosage: 1500 mg, QD
     Route: 048
     Dates: start: 20120217, end: 20120222
  5. NORVASC [Concomitant]
     Indication: HYPERTENSION
     Dosage: 5 mg, QD
     Route: 048
     Dates: end: 20120222
  6. NU-LOTAN [Concomitant]
     Indication: HYPERTENSION
     Dosage: 50 mg, qd
     Route: 048
     Dates: end: 20120222
  7. LASIX (FUROSEMIDE) [Concomitant]
     Indication: PROPHYLAXIS
     Dosage: 20 mg, QD
     Route: 048
     Dates: end: 20120222
  8. ALDACTONE A [Concomitant]
     Indication: PROPHYLAXIS
     Dosage: 25 mg, qd
     Route: 048
     Dates: end: 20120222
  9. AMARYL [Concomitant]
     Indication: DIABETES MELLITUS
     Dosage: 1 mg, qd
     Route: 048
     Dates: end: 20120222
  10. NOVORAPID [Concomitant]
     Indication: DIABETES MELLITUS
     Dosage: Ten units in the morning, four units at noon, six units in the evening/day
     Route: 058
     Dates: end: 20120222

REACTIONS (3)
  - Hyperkalaemia [Recovered/Resolved]
  - Cardiac arrest [Recovered/Resolved]
  - Renal disorder [Recovered/Resolved]
